FAERS Safety Report 7146589-3 (Version None)
Quarter: 2010Q4

REPORT INFORMATION
  Report Type: 
  Country: None (occurrence: None)
  Receive Date: 20101208
  Receipt Date: 20101125
  Transmission Date: 20110411
  Serious: Yes (Hospitalization)
  Sender: FDA-Public Use
  Company Number: DE-MYLANLABS-2009S1006670

PATIENT
  Age: 74 Year
  Sex: Male
  Weight: 62 kg

DRUGS (6)
  1. PREDNISOLONE [Suspect]
     Indication: RHEUMATOID ARTHRITIS
     Route: 048
     Dates: start: 20070101
  2. MTX /00113801/ [Suspect]
     Indication: RHEUMATOID ARTHRITIS
     Route: 048
     Dates: start: 20070101
  3. SALOFALK /00000301/ [Concomitant]
     Indication: ABDOMINAL DISCOMFORT
     Route: 048
     Dates: start: 20080828, end: 20081022
  4. FOLSAN [Concomitant]
     Indication: ANAEMIA
     Route: 048
     Dates: start: 20080828
  5. FERROSANOL [Concomitant]
     Indication: ANAEMIA
     Route: 048
     Dates: start: 20080828, end: 20081022
  6. BENALAPRIL [Concomitant]
     Indication: HYPERTENSION
     Route: 048
     Dates: start: 20070101

REACTIONS (1)
  - LOWER GASTROINTESTINAL HAEMORRHAGE [None]
